FAERS Safety Report 21867047 (Version 4)
Quarter: 2023Q2

REPORT INFORMATION
  Report Type: Report from Study
  Country: CN (occurrence: CN)
  Receive Date: 20230116
  Receipt Date: 20230511
  Transmission Date: 20230722
  Serious: Yes (Other)
  Sender: FDA-Public Use
  Company Number: CN-TAKEDA-2022TUS096087

PATIENT
  Age: 66 Year
  Sex: Female
  Weight: 43.5 kg

DRUGS (17)
  1. IXAZOMIB [Suspect]
     Active Substance: IXAZOMIB
     Indication: Plasma cell myeloma
     Dosage: 4 MILLIGRAM
     Route: 048
     Dates: start: 20220714
  2. ESOMEPRAZOLE SODIUM [Concomitant]
     Active Substance: ESOMEPRAZOLE SODIUM
     Indication: Prophylaxis
     Dosage: 40 MILLIGRAM, QD
     Route: 041
     Dates: start: 20220806, end: 20220811
  3. MAGNESIUM ISOGLYCYRRHIZINATE [Concomitant]
     Active Substance: MAGNESIUM ISOGLYCYRRHIZINATE
     Indication: Prophylaxis
     Dosage: 100 MILLIGRAM, QD
     Route: 041
     Dates: start: 20220806, end: 20220815
  4. METHYLCOBALAMIN [Concomitant]
     Active Substance: METHYLCOBALAMIN
     Indication: Nerve injury
     Dosage: 1000 MICROGRAM, QD
     Route: 041
     Dates: start: 20220806, end: 20220816
  5. DEXAMETHASONE SODIUM PHOSPHATE [Concomitant]
     Active Substance: DEXAMETHASONE SODIUM PHOSPHATE
     Indication: Plasma cell myeloma
     Dosage: 20 MILLIGRAM, QD
     Route: 041
     Dates: start: 20220806, end: 20220809
  6. HYDROTALCITE [Concomitant]
     Active Substance: HYDROTALCITE
     Indication: Prophylaxis
     Dosage: 1 GRAM, TID
     Route: 048
     Dates: start: 20220806, end: 20220809
  7. SODIUM BICARBONATE [Concomitant]
     Active Substance: SODIUM BICARBONATE
     Indication: Urine alkalinisation therapy
     Dosage: 125 MILLILITER, QD
     Route: 041
     Dates: start: 20220806, end: 20220809
  8. PALONOSETRON HYDROCHLORIDE [Concomitant]
     Active Substance: PALONOSETRON HYDROCHLORIDE
     Indication: Antiemetic supportive care
     Dosage: 0.25 MILLIGRAM, QD
     Route: 041
     Dates: start: 20220806, end: 20220809
  9. DOXORUBICIN HYDROCHLORIDE [Concomitant]
     Active Substance: DOXORUBICIN HYDROCHLORIDE
     Indication: Plasma cell myeloma
     Dosage: 10 MILLIGRAM, QD
     Route: 041
     Dates: start: 20220806, end: 20220809
  10. CREATINE [Concomitant]
     Active Substance: CREATINE
     Indication: Cardiovascular event prophylaxis
     Dosage: 1 GRAM, QD
     Route: 041
     Dates: start: 20220806, end: 20220815
  11. LOSEC [Concomitant]
     Active Substance: OMEPRAZOLE
     Indication: Prophylaxis
     Dosage: 40 MILLIGRAM, QD
     Route: 041
     Dates: start: 20220811, end: 20220816
  12. DOMPERIDONE [Concomitant]
     Active Substance: DOMPERIDONE
     Indication: Prophylaxis
     Dosage: 10 MILLIGRAM, TID
     Route: 048
     Dates: start: 20220811, end: 20220826
  13. ZOLEDRONIC ACID [Concomitant]
     Active Substance: ZOLEDRONIC ACID
     Indication: Osteoporosis
     Dosage: 4 MILLIGRAM
     Route: 041
     Dates: start: 20220805, end: 20220805
  14. BORTEZOMIB [Concomitant]
     Active Substance: BORTEZOMIB
     Indication: Plasma cell myeloma
     Dosage: 1 MILLILITER
     Route: 058
     Dates: start: 20220806, end: 20220816
  15. ACYCLOVIR [Concomitant]
     Active Substance: ACYCLOVIR
     Indication: Prophylaxis
     Dosage: 0.4 GRAM, TID
     Route: 048
     Dates: start: 20220806, end: 20220826
  16. GABAPENTIN [Concomitant]
     Active Substance: GABAPENTIN
     Indication: Prophylaxis
     Dosage: 0.3 GRAM, BID
     Route: 048
     Dates: start: 20220806, end: 20220823
  17. Compound reserpine and triamterene [Concomitant]
     Indication: Hypertension
     Dosage: UNK UNK, QD
     Route: 048
     Dates: start: 2010

REACTIONS (11)
  - Myelosuppression [Recovered/Resolved]
  - Hypokalaemia [Recovered/Resolved]
  - Hypoalbuminaemia [Recovered/Resolved]
  - Hypocalcaemia [Recovered/Resolved]
  - Hyponatraemia [Recovered/Resolved]
  - Hypochloraemia [Recovered/Resolved]
  - Hypoglycaemia [Recovered/Resolved]
  - Hypoproteinaemia [Recovered/Resolved]
  - Cough [Recovering/Resolving]
  - Hypoglobulinaemia [Recovered/Resolved]
  - Off label use [Unknown]

NARRATIVE: CASE EVENT DATE: 20220813
